FAERS Safety Report 8305618-1 (Version None)
Quarter: 2012Q2

REPORT INFORMATION
  Report Type: 
  Country: None (occurrence: None)
  Receive Date: 20120418
  Receipt Date: 20120405
  Transmission Date: 20120825
  Serious: Yes (Other)
  Sender: FDA-Public Use
  Company Number: 2012MA004821

PATIENT
  Age: 82 Year
  Sex: Male

DRUGS (1)
  1. TRAMADOL HYDROCHLORIDE [Suspect]
     Indication: PAIN

REACTIONS (6)
  - TREMOR [None]
  - DYSARTHRIA [None]
  - TINNITUS [None]
  - PHOTOPSIA [None]
  - LIP SWELLING [None]
  - WITHDRAWAL SYNDROME [None]
